FAERS Safety Report 18964564 (Version 1)
Quarter: 2021Q1

REPORT INFORMATION
  Report Type: Spontaneous
  Country: CA (occurrence: CA)
  Receive Date: 20210303
  Receipt Date: 20210303
  Transmission Date: 20210420
  Serious: Yes (Life-Threatening, Hospitalization)
  Sender: FDA-Public Use
  Company Number: CA-PFIZER INC-2021197314

PATIENT
  Sex: Female
  Weight: 17 kg

DRUGS (8)
  1. METHOTREXATE SODIUM. [Suspect]
     Active Substance: METHOTREXATE SODIUM
     Indication: T-CELL PROLYMPHOCYTIC LEUKAEMIA
     Route: 037
  2. METHOTREXATE SODIUM. [Suspect]
     Active Substance: METHOTREXATE SODIUM
     Indication: T-CELL PROLYMPHOCYTIC LEUKAEMIA
  3. ONCASPAR [Suspect]
     Active Substance: PEGASPARGASE
     Indication: T-CELL PROLYMPHOCYTIC LEUKAEMIA
  4. CYTARABINE. [Suspect]
     Active Substance: CYTARABINE
     Indication: T-CELL TYPE ACUTE LEUKAEMIA
  5. ONCASPAR [Suspect]
     Active Substance: PEGASPARGASE
     Indication: T-CELL TYPE ACUTE LEUKAEMIA
  6. VINCRISTINE SULFATE. [Suspect]
     Active Substance: VINCRISTINE SULFATE
     Indication: T-CELL PROLYMPHOCYTIC LEUKAEMIA
  7. VINCRISTINE SULFATE. [Suspect]
     Active Substance: VINCRISTINE SULFATE
     Indication: T-CELL TYPE ACUTE LEUKAEMIA
  8. CYTARABINE. [Suspect]
     Active Substance: CYTARABINE
     Indication: T-CELL PROLYMPHOCYTIC LEUKAEMIA

REACTIONS (1)
  - Febrile neutropenia [Recovering/Resolving]
